FAERS Safety Report 9226911 (Version 2)
Quarter: 2014Q3

REPORT INFORMATION
  Report Type: Report from Study
  Country: CA (occurrence: CA)
  Receive Date: 20130412
  Receipt Date: 20140703
  Transmission Date: 20150326
  Serious: Yes (Hospitalization)
  Sender: FDA-Public Use
  Company Number: CA-JNJFOC-20130404817

PATIENT
  Age: 61 Year
  Sex: Male
  Weight: 79.83 kg

DRUGS (3)
  1. REMICADE [Suspect]
     Active Substance: INFLIXIMAB
     Indication: CROHN^S DISEASE
     Route: 042
     Dates: start: 201404
  2. WARFARIN [Concomitant]
     Active Substance: WARFARIN
     Route: 065
  3. REMICADE [Suspect]
     Active Substance: INFLIXIMAB
     Indication: CROHN^S DISEASE
     Route: 042
     Dates: start: 201110

REACTIONS (1)
  - Aortic valve incompetence [Unknown]

NARRATIVE: CASE EVENT DATE: 201303
